FAERS Safety Report 15204813 (Version 4)
Quarter: 2018Q3

REPORT INFORMATION
  Report Type: Report from Study
  Country: BR (occurrence: BR)
  Receive Date: 20180726
  Receipt Date: 20180926
  Transmission Date: 20181010
  Serious: Yes (Death, Hospitalization, Other)
  Sender: FDA-Public Use
  Company Number: US-BIOMARINAP-BR-2018-119150

PATIENT
  Age: 32 Year
  Sex: Male
  Weight: 70 kg

DRUGS (2)
  1. ALDURAZYME [Suspect]
     Active Substance: LARONIDASE
     Indication: MUCOPOLYSACCHARIDOSIS
     Dosage: UNK, QW
     Route: 041
     Dates: start: 20090801
  2. ALDURAZYME [Suspect]
     Active Substance: LARONIDASE
     Dosage: UNK, QOW
     Route: 041

REACTIONS (8)
  - Unevaluable event [Recovering/Resolving]
  - Malaise [Recovering/Resolving]
  - Pneumonia [Not Recovered/Not Resolved]
  - Death [Fatal]
  - Dyspnoea [Recovering/Resolving]
  - Anuria [Recovering/Resolving]
  - Respiratory therapy [Not Recovered/Not Resolved]
  - Lung disorder [Not Recovered/Not Resolved]

NARRATIVE: CASE EVENT DATE: 20180821
